FAERS Safety Report 21439081 (Version 1)
Quarter: 2022Q4

REPORT INFORMATION
  Report Type: Spontaneous
  Country: DK (occurrence: DK)
  Receive Date: 20221011
  Receipt Date: 20221011
  Transmission Date: 20230113
  Serious: Yes (Hospitalization, Disabling)
  Sender: FDA-Public Use
  Company Number: None

PATIENT
  Age: 73 Year
  Sex: Female

DRUGS (4)
  1. SIMVASTATIN [Suspect]
     Active Substance: SIMVASTATIN
     Indication: Hypercholesterolaemia
     Dosage: TABLET (UNCOATED)
     Route: 048
     Dates: start: 2011, end: 201605
  2. ATORVASTATIN [Suspect]
     Active Substance: ATORVASTATIN
     Indication: Hypercholesterolaemia
     Dosage: STRENGTH: 80 MG
     Dates: start: 20210105, end: 20210303
  3. ATORVASTATIN [Suspect]
     Active Substance: ATORVASTATIN
     Indication: Hypercholesterolaemia
     Dosage: DOSE INCREASED FROM 10 MG TO 20 MG DAILY FROM AT LEAST SINCE 13-DEC-2019.?STRENGTH: 20 MG
     Dates: start: 201606, end: 20210104
  4. ROSUVASTATIN [Concomitant]
     Active Substance: ROSUVASTATIN
     Indication: Hypercholesterolaemia
     Dosage: STRENGTH: 5 MG
     Dates: start: 20210303, end: 20210429

REACTIONS (5)
  - Immune-mediated myositis [Unknown]
  - Muscular weakness [Unknown]
  - Renal disorder [Unknown]
  - Myalgia [Unknown]
  - Gait disturbance [Unknown]

NARRATIVE: CASE EVENT DATE: 20200101
